FAERS Safety Report 5441459-0 (Version None)
Quarter: 2007Q3

REPORT INFORMATION
  Report Type: 
  Country: None (occurrence: None)
  Receive Date: 20070828
  Receipt Date: 20070619
  Transmission Date: 20080115
  Serious: Yes (Death)
  Sender: FDA-Public Use
  Company Number: 2007SP002349

PATIENT
  Age: 84 Year
  Sex: Male
  Weight: 63.5036 kg

DRUGS (7)
  1. XOPENEX [Suspect]
     Indication: CHRONIC OBSTRUCTIVE PULMONARY DISEASE
     Dosage: 1.25 MG/3ML; 1X; INHALATION
     Route: 055
     Dates: start: 20070601, end: 20070601
  2. ALBUTEROL [Concomitant]
  3. FOLIC ACID [Concomitant]
  4. HYZAAR [Concomitant]
  5. VITAMIN CAP [Concomitant]
  6. TIOTROPIUM BROMIDE [Concomitant]
  7. OXYGEN [Concomitant]

REACTIONS (3)
  - EMPHYSEMA [None]
  - PANIC DISORDER [None]
  - RESPIRATORY TRACT INFECTION [None]
